FAERS Safety Report 6779222-0 (Version None)
Quarter: 2010Q2

REPORT INFORMATION
  Report Type: 
  Country: None (occurrence: None)
  Receive Date: 20100618
  Receipt Date: 20100317
  Transmission Date: 20101027
  Serious: No
  Sender: FDA-Public Use
  Company Number: A0850666A

PATIENT
  Age: 59 Year
  Sex: Female

DRUGS (5)
  1. PROMACTA [Suspect]
     Indication: IDIOPATHIC THROMBOCYTOPENIC PURPURA
     Dosage: 25MG PER DAY
     Route: 048
     Dates: start: 20100304
  2. ZIAC [Concomitant]
  3. PAXIL [Concomitant]
  4. NEXIUM [Concomitant]
  5. DIOVAN [Concomitant]

REACTIONS (1)
  - NAUSEA [None]
